FAERS Safety Report 17072852 (Version 3)
Quarter: 2020Q1

REPORT INFORMATION
  Report Type: Spontaneous
  Country: US (occurrence: US)
  Receive Date: 20191125
  Receipt Date: 20200108
  Transmission Date: 20200409
  Serious: Yes (Hospitalization, Other)
  Sender: FDA-Public Use
  Company Number: US-TEVA-2019-US-1144267

PATIENT
  Sex: Male

DRUGS (14)
  1. NORCO [Suspect]
     Active Substance: ACETAMINOPHEN\HYDROCODONE BITARTRATE
     Route: 064
  2. DURAGESIC [Suspect]
     Active Substance: FENTANYL
     Route: 064
  3. OPANA [Suspect]
     Active Substance: OXYMORPHONE HYDROCHLORIDE
     Dosage: EXTENDED RELEASE
     Route: 064
  4. ACTIQ [Suspect]
     Active Substance: FENTANYL CITRATE
     Route: 064
  5. FENTORA [Suspect]
     Active Substance: FENTANYL CITRATE
     Route: 064
  6. OXYCODONE ENDO PHARMACEUTICALS [Suspect]
     Active Substance: OXYCODONE HYDROCHLORIDE
     Route: 064
  7. PERCOCET [Suspect]
     Active Substance: ACETAMINOPHEN\OXYCODONE HYDROCHLORIDE
     Route: 064
  8. KADIAN [Suspect]
     Active Substance: MORPHINE SULFATE
     Route: 064
  9. PERODAN ENDO PHARMACEUTICALS [ASPIRIN\OXYCODONE HYDROCHLORIDE\OXYCODONE TEREPHTHALATE] [Suspect]
     Active Substance: ASPIRIN\OXYCODONE HYDROCHLORIDE\OXYCODONE TEREPHTHALATE
     Route: 064
  10. VICODIN [Suspect]
     Active Substance: ACETAMINOPHEN\HYDROCODONE BITARTRATE
     Route: 064
  11. LORTAB [Suspect]
     Active Substance: ACETAMINOPHEN\HYDROCODONE BITARTRATE
     Route: 064
  12. OXYMORPHONE ENDO PHARMACEUTICALS [Suspect]
     Active Substance: OXYMORPHONE
     Route: 064
  13. OPANA [Suspect]
     Active Substance: OXYMORPHONE HYDROCHLORIDE
     Route: 064
  14. HYDROMORPHONE ENDO PHARMACEUTICALS [Suspect]
     Active Substance: HYDROMORPHONE
     Route: 064

REACTIONS (7)
  - Opisthotonus [Not Recovered/Not Resolved]
  - Foetal exposure during pregnancy [Unknown]
  - Tremor [Not Recovered/Not Resolved]
  - Pain [Not Recovered/Not Resolved]
  - Neonatal disorder [Unknown]
  - Drug withdrawal syndrome neonatal [Not Recovered/Not Resolved]
  - Selective eating disorder [Unknown]
